FAERS Safety Report 18898353 (Version 2)
Quarter: 2021Q1

REPORT INFORMATION
  Report Type: Spontaneous
  Country: CN (occurrence: CN)
  Receive Date: 20210216
  Receipt Date: 20210331
  Transmission Date: 20210420
  Serious: Yes (Other)
  Sender: FDA-Public Use
  Company Number: NVSC2021CN029247

PATIENT

DRUGS (2)
  1. LOTENSIN [Suspect]
     Active Substance: BENAZEPRIL HYDROCHLORIDE
     Indication: PRODUCT USED FOR UNKNOWN INDICATION
     Dosage: UNK
     Route: 048
  2. LOTENSIN [Suspect]
     Active Substance: BENAZEPRIL HYDROCHLORIDE
     Dosage: UNK
     Route: 048

REACTIONS (4)
  - Blood pressure inadequately controlled [Unknown]
  - Gingival bleeding [Unknown]
  - Drug ineffective [Unknown]
  - Dizziness [Unknown]
